FAERS Safety Report 6263992-4 (Version None)
Quarter: 2009Q3

REPORT INFORMATION
  Report Type: 
  Country: None (occurrence: None)
  Receive Date: 20090710
  Receipt Date: 20090706
  Transmission Date: 20100115
  Serious: Yes (Other)
  Sender: FDA-Public Use
  Company Number: US-ASTRAZENECA-2008UW27630

PATIENT
  Age: 408 Month
  Sex: Male
  Weight: 64.9 kg

DRUGS (8)
  1. SEROQUEL [Suspect]
     Indication: BIPOLAR DISORDER
     Route: 048
     Dates: start: 20050501, end: 20070901
  2. SEROQUEL [Suspect]
     Indication: DEPRESSION
     Route: 048
     Dates: start: 20050501, end: 20070901
  3. ZYPREXA [Concomitant]
     Dates: start: 20060109, end: 20060201
  4. CITALOPRAM HYDROBROMIDE [Concomitant]
     Dates: start: 20060101
  5. ELAVIL [Concomitant]
     Dates: start: 20090401
  6. LORAZEPAM [Concomitant]
     Dates: start: 20070604
  7. MIRTAZAPINE [Concomitant]
     Dates: start: 20060227, end: 20060914
  8. CHLORDIAZEP [Concomitant]
     Dates: start: 20060101, end: 20060505

REACTIONS (5)
  - ADVERSE DRUG REACTION [None]
  - DIABETES MELLITUS [None]
  - HERNIA [None]
  - PANCREATITIS [None]
  - SPINAL DEFORMITY [None]
